FAERS Safety Report 11366140 (Version 1)
Quarter: 2015Q3

REPORT INFORMATION
  Report Type: Report from Study
  Country: DK (occurrence: IT)
  Receive Date: 20150811
  Receipt Date: 20150811
  Transmission Date: 20151125
  Serious: Yes (Hospitalization)
  Sender: FDA-Public Use
  Company Number: IT-FRI-1000078861

PATIENT
  Age: 72 Year
  Sex: Female

DRUGS (3)
  1. DIETARY SUPPLEMENT/MELATONIN PROLONGED RELEASE [Concomitant]
     Indication: PRODUCT USED FOR UNKNOWN INDICATION
     Route: 065
  2. LAMICTAL [Suspect]
     Active Substance: LAMOTRIGINE
     Indication: EPILEPSY
     Dosage: 1 DOSAGE FORM
     Route: 048
     Dates: start: 20150605, end: 20150727
  3. CITALOPRAM [Suspect]
     Active Substance: CITALOPRAM HYDROBROMIDE
     Indication: DEPRESSION
     Dosage: 1 DOSAGE FORM
     Route: 048
     Dates: start: 20150605, end: 20150727

REACTIONS (2)
  - Rash generalised [Recovering/Resolving]
  - Rash macular [None]

NARRATIVE: CASE EVENT DATE: 20150727
